FAERS Safety Report 5030760-0 (Version None)
Quarter: 2006Q2

REPORT INFORMATION
  Report Type: 
  Country: None (occurrence: None)
  Receive Date: 20060615
  Receipt Date: 20060602
  Transmission Date: 20061013
  Serious: Yes (Hospitalization)
  Sender: FDA-Public Use
  Company Number: 2006BH010543

PATIENT
  Sex: Female

DRUGS (20)
  1. LORAZEPAM [Suspect]
     Indication: SCHIZOPHRENIA, DISORGANISED TYPE
     Dosage: SEE IMAGE
     Dates: start: 20060115, end: 20060209
  2. LORAZEPAM [Suspect]
     Indication: SCHIZOPHRENIA, DISORGANISED TYPE
     Dosage: SEE IMAGE
     Dates: start: 20060210, end: 20060222
  3. LORAZEPAM [Suspect]
     Indication: SCHIZOPHRENIA, DISORGANISED TYPE
     Dosage: SEE IMAGE
     Dates: start: 20060223, end: 20060224
  4. LORAZEPAM [Suspect]
     Indication: SCHIZOPHRENIA, DISORGANISED TYPE
     Dosage: SEE IMAGE
     Dates: start: 20060226, end: 20060404
  5. LORAZEPAM [Suspect]
     Indication: SCHIZOPHRENIA, DISORGANISED TYPE
     Dosage: SEE IMAGE
     Dates: start: 20060405, end: 20060419
  6. LORAZEPAM [Suspect]
     Indication: SCHIZOPHRENIA, DISORGANISED TYPE
     Dosage: SEE IMAGE
     Dates: start: 20060420, end: 20060423
  7. LORAZEPAM [Suspect]
     Indication: SCHIZOPHRENIA, DISORGANISED TYPE
     Dosage: SEE IMAGE
     Dates: start: 20060225
  8. LORAZEPAM [Suspect]
     Indication: SCHIZOPHRENIA, DISORGANISED TYPE
     Dosage: SEE IMAGE
     Dates: start: 20060424
  9. DOMINAL (NO PREF. NAME) [Suspect]
     Indication: DRUG USE FOR UNKNOWN INDICATION
     Dosage: 40 + 80 + 40 MG
     Dates: start: 20060111, end: 20060114
  10. DOMINAL (NO PREF. NAME) [Suspect]
     Indication: DRUG USE FOR UNKNOWN INDICATION
     Dosage: 40 + 80 + 40 MG
     Dates: start: 20060115, end: 20060207
  11. DOMINAL (NO PREF. NAME) [Suspect]
     Indication: DRUG USE FOR UNKNOWN INDICATION
     Dosage: 40 + 80 + 40 MG
     Dates: start: 20060208, end: 20060403
  12. SOLIAN (AMISULPRIDE) [Suspect]
     Indication: DRUG USE FOR UNKNOWN INDICATION
     Dosage: SEE IMAGE
     Dates: start: 20060116, end: 20060122
  13. SOLIAN (AMISULPRIDE) [Suspect]
     Indication: DRUG USE FOR UNKNOWN INDICATION
     Dosage: SEE IMAGE
     Dates: start: 20060123, end: 20060124
  14. SOLIAN (AMISULPRIDE) [Suspect]
     Indication: DRUG USE FOR UNKNOWN INDICATION
     Dosage: SEE IMAGE
     Dates: start: 20060225, end: 20060403
  15. SOLIAN (AMISULPRIDE) [Suspect]
     Indication: DRUG USE FOR UNKNOWN INDICATION
     Dosage: SEE IMAGE
     Dates: start: 20060115
  16. SOLIAN (AMISULPRIDE) [Suspect]
     Indication: DRUG USE FOR UNKNOWN INDICATION
     Dosage: SEE IMAGE
     Dates: start: 20060404
  17. HALDOL [Concomitant]
  18. GEWACALM [Concomitant]
  19. ZOLDEM [Concomitant]
  20. SSEROXAT [Concomitant]

REACTIONS (1)
  - NEUTROPENIA [None]
